FAERS Safety Report 5407449-9 (Version None)
Quarter: 2007Q3

REPORT INFORMATION
  Report Type: 
  Country: None (occurrence: None)
  Receive Date: 20070803
  Receipt Date: 20070720
  Transmission Date: 20080115
  Serious: Yes (Hospitalization, Other)
  Sender: FDA-Public Use
  Company Number: 2007BI016061

PATIENT
  Age: 55 Year
  Sex: Female
  Weight: 70 kg

DRUGS (4)
  1. AVONEX [Suspect]
     Indication: MULTIPLE SCLEROSIS
     Dosage: 1; QW;IM
     Route: 030
     Dates: start: 20040801
  2. DEXTROMETHORPHAN HYDROBROMIDE [Concomitant]
  3. AMITRIPTYLINE HCL [Concomitant]
  4. PARACETAMOL [Concomitant]

REACTIONS (1)
  - SYSTEMIC LUPUS ERYTHEMATOSUS [None]
